FAERS Safety Report 15359273 (Version 4)
Quarter: 2020Q3

REPORT INFORMATION
  Report Type: Spontaneous
  Country: DE (occurrence: DE)
  Receive Date: 20180907
  Receipt Date: 20200714
  Transmission Date: 20201102
  Serious: Yes (Hospitalization, Congenital Anomaly, Other)
  Sender: FDA-Public Use
  Company Number: PHHY2017DE204694

PATIENT
  Age: 3 Year
  Sex: Female

DRUGS (15)
  1. DICLOFENAC [Concomitant]
     Active Substance: DICLOFENAC
     Indication: SCIATICA
     Dosage: 75 MG, QD ()5 MG DAILY FOR LUMBOISCHIALGIA FOR ANOTHER 7 DAY)
     Route: 065
  2. VALPROATE SODIUM. [Suspect]
     Active Substance: VALPROATE SODIUM
     Dosage: 2300 MG, QD
     Route: 064
     Dates: start: 20140222, end: 20140714
  3. PANTOPRAZOL [Concomitant]
     Active Substance: PANTOPRAZOLE SODIUM
     Indication: FOETAL EXPOSURE DURING PREGNANCY
     Dosage: MATERNAL DOSE:20 MG, QD
     Route: 065
  4. VALPROATE SODIUM. [Suspect]
     Active Substance: VALPROATE SODIUM
     Indication: FOETAL EXPOSURE DURING PREGNANCY
     Dosage: 1300 ? 2500 MG DAILY
     Route: 064
  5. ERGENYL CHRONO [Suspect]
     Active Substance: VALPROIC ACID
     Indication: FOETAL EXPOSURE DURING PREGNANCY
     Dosage: MATERNAL DOSE: 2300 MG, QD
     Route: 064
     Dates: start: 20131206, end: 20140221
  6. NOVORAPID [Concomitant]
     Active Substance: INSULIN ASPART
     Indication: FOETAL EXPOSURE DURING PREGNANCY
     Dosage: MATERNAL DOSE:5.5 IU THROUGHOUT THE DAY
     Route: 064
     Dates: start: 2014
  7. QUETIAPINE FUMARATE. [Suspect]
     Active Substance: QUETIAPINE FUMARATE
     Dosage: MATERNAL DOSE (50 MG, QD)
     Route: 064
  8. LITHIUM. [Suspect]
     Active Substance: LITHIUM
     Indication: FOETAL EXPOSURE DURING PREGNANCY
     Dosage: MATERNAL DOSE: 900 MG, QD
     Route: 064
  9. MACROGOL [Concomitant]
     Active Substance: POLYETHYLENE GLYCOLS
     Indication: CONSTIPATION
     Dosage: MATERNAL DOSE:1 DF, QD
     Route: 065
  10. L?THYROXINE [Concomitant]
     Active Substance: LEVOTHYROXINE
     Indication: PRODUCT USED FOR UNKNOWN INDICATION
     Dosage: MATERNAL DOSE:50 UG, QD
     Route: 065
  11. VALPROATE SODIUM. [Suspect]
     Active Substance: VALPROATE SODIUM
     Dosage: UNK
     Route: 064
     Dates: start: 201311, end: 20140725
  12. ERGENYL CHRONO [Suspect]
     Active Substance: VALPROIC ACID
     Dosage: MATERNAL DOSE: 2300 MG, QD
     Route: 064
     Dates: start: 20140715, end: 20140725
  13. PROTAPHANE [Concomitant]
     Active Substance: INSULIN HUMAN
     Indication: FOETAL EXPOSURE DURING PREGNANCY
     Dosage: MATERNAL DOSE:6 IU AT NIGHT
     Route: 064
     Dates: start: 2014
  14. QUETIAPINE FUMARATE. [Suspect]
     Active Substance: QUETIAPINE FUMARATE
     Indication: FOETAL EXPOSURE DURING PREGNANCY
     Dosage: MATERNAL DOSE (200 MG, QD)
     Route: 064
  15. ERGENYL CHRONO [Suspect]
     Active Substance: VALPROIC ACID
     Dosage: UNK
     Route: 064
     Dates: start: 201311, end: 20140725

REACTIONS (44)
  - Accidental exposure to product by child [Unknown]
  - Congenital foot malformation [Unknown]
  - Sensory integrative dysfunction [Not Recovered/Not Resolved]
  - Sleep apnoea syndrome [Unknown]
  - Disorientation [Unknown]
  - Cystic fibrosis [Unknown]
  - Foetal exposure during pregnancy [Unknown]
  - Hypotonia [Unknown]
  - Withdrawal syndrome [Unknown]
  - Wheezing [Unknown]
  - Respiratory syncytial virus infection [Unknown]
  - Myoclonus [Unknown]
  - Adjustment disorder [Unknown]
  - Neonatal respiratory acidosis [Unknown]
  - Gross motor delay [Not Recovered/Not Resolved]
  - Late metabolic acidosis of newborn [Unknown]
  - Ventricular septal defect [Recovered/Resolved]
  - Developmental delay [Recovering/Resolving]
  - Atrial septal defect [Recovered/Resolved]
  - Speech disorder [Recovering/Resolving]
  - Speech disorder developmental [Unknown]
  - Speech disorder developmental [Unknown]
  - Congenital eyelid malformation [Unknown]
  - Mental disability [Not Recovered/Not Resolved]
  - Cognitive disorder [Unknown]
  - Sensory disturbance [Recovering/Resolving]
  - Movement disorder [Recovering/Resolving]
  - Tachypnoea [Unknown]
  - Respiratory tract infection [Recovered/Resolved]
  - Gastroenteritis rotavirus [Recovered/Resolved]
  - Toxicity to various agents [Unknown]
  - Developmental coordination disorder [Unknown]
  - Ear infection [Unknown]
  - Muscle twitching [Unknown]
  - Tricuspid valve incompetence [Unknown]
  - Polycystic ovaries [Unknown]
  - Foetal anticonvulsant syndrome [Not Recovered/Not Resolved]
  - Autism spectrum disorder [Unknown]
  - Mitral valve incompetence [Recovered/Resolved]
  - Hypokinesia [Not Recovered/Not Resolved]
  - Bronchitis [Unknown]
  - Congenital hand malformation [Unknown]
  - Muscle tone disorder [Not Recovered/Not Resolved]
  - Congenital nose malformation [Unknown]

NARRATIVE: CASE EVENT DATE: 20140725
